FAERS Safety Report 26146275 (Version 1)
Quarter: 2025Q4

REPORT INFORMATION
  Report Type: Spontaneous
  Country: EU (occurrence: EU)
  Receive Date: 20251211
  Receipt Date: 20251211
  Transmission Date: 20260118
  Serious: Yes (Other)
  Sender: TEVA
  Company Number: None

PATIENT
  Age: 28 Year
  Sex: Male
  Weight: 89 kg

DRUGS (13)
  1. CLOZAPINE [Suspect]
     Active Substance: CLOZAPINE
     Indication: Product used for unknown indication
     Dosage: 125 MG DAILY (AFTER ESCALATION)
     Route: 048
     Dates: start: 20251008
  2. MELATONIN [Concomitant]
     Active Substance: MELATONIN
     Indication: Product used for unknown indication
     Dosage: TIME INTERVAL: 1 AS NECESSARY: 1 AT 8PM
     Dates: start: 20250801, end: 20251104
  3. Zopiclone Orion [Concomitant]
     Indication: Product used for unknown indication
     Dosage: TIME INTERVAL: 1 AS NECESSARY: 1TNVBTV
     Dates: start: 20250821
  4. MOVICOL [Concomitant]
     Active Substance: POLYETHYLENE GLYCOL 3350\POTASSIUM CHLORIDE\SODIUM BICARBONATE\SODIUM CHLORIDE
     Indication: Product used for unknown indication
     Dosage: 1X1-3TV
     Dates: start: 20251017
  5. HALDOL [Concomitant]
     Active Substance: HALOPERIDOL
     Indication: Product used for unknown indication
     Dosage: 2KL14TV
     Dates: start: 20251017, end: 20251103
  6. OLANZAPINE [Concomitant]
     Active Substance: OLANZAPINE
     Indication: Product used for unknown indication
     Dosage: TIME INTERVAL: 1 AS NECESSARY: 1VB MAX2/D, OLANZAPINE GLENMARK EUROPE
     Dates: start: 20250911, end: 20251104
  7. ABILIFY MAINTENA [Concomitant]
     Active Substance: ARIPIPRAZOLE
     Indication: Product used for unknown indication
     Dosage: 2VAR4V
     Dates: start: 20250917
  8. TRIMEPRAZINE TARTRATE [Concomitant]
     Active Substance: TRIMEPRAZINE TARTRATE
     Indication: Product used for unknown indication
     Dosage: TIME INTERVAL: 1 AS NECESSARY: 1VBMAX1/D
     Dates: start: 20250930
  9. PROPIOMAZINE [Concomitant]
     Active Substance: PROPIOMAZINE
     Indication: Product used for unknown indication
     Dosage: TIME INTERVAL: 1 AS NECESSARY: 1VBMAX2/D
     Dates: start: 20250903, end: 20251104
  10. ABILIFY [Concomitant]
     Active Substance: ARIPIPRAZOLE
     Indication: Product used for unknown indication
     Dosage: 2 AT 8PM
     Dates: start: 20250808
  11. Temesta [Concomitant]
     Indication: Product used for unknown indication
     Dosage: 1X2TV
     Dates: start: 20251016
  12. DESLORATADINE [Concomitant]
     Active Substance: DESLORATADINE
     Indication: Product used for unknown indication
     Dosage: TIME INTERVAL: 1 AS NECESSARY: 1X1VBTV
     Dates: start: 20230617, end: 20251104
  13. PROPRANOLOL HYDROCHLORIDE [Concomitant]
     Active Substance: PROPRANOLOL HYDROCHLORIDE
     Indication: Product used for unknown indication
     Dosage: 1X2
     Dates: start: 20251006, end: 20251113

REACTIONS (6)
  - Myocarditis [Recovering/Resolving]
  - Pyrexia [Recovering/Resolving]
  - C-reactive protein increased [Recovering/Resolving]
  - Electrocardiogram ST segment elevation [Recovering/Resolving]
  - Troponin increased [Recovering/Resolving]
  - Intensive care [Recovering/Resolving]

NARRATIVE: CASE EVENT DATE: 20251024
